FAERS Safety Report 4717268-4 (Version None)
Quarter: 2005Q3

REPORT INFORMATION
  Report Type: 
  Country: None (occurrence: None)
  Receive Date: 20050715
  Receipt Date: 20050630
  Transmission Date: 20060218
  Serious: Yes (Hospitalization)
  Sender: FDA-Public Use
  Company Number: 2005BI005074

PATIENT
  Age: 44 Year
  Sex: Female
  Weight: 53 kg

DRUGS (2)
  1. AVONEX [Suspect]
     Indication: MULTIPLE SCLEROSIS
     Dosage: 30 UG;Q W; IM
     Route: 030
     Dates: start: 19970101, end: 20030922
  2. AVONEX [Suspect]
     Indication: MULTIPLE SCLEROSIS
     Dosage: 30 UG;QW; IM
     Route: 030
     Dates: start: 20030922, end: 20041001

REACTIONS (3)
  - DEEP VEIN THROMBOSIS [None]
  - MULTIPLE SCLEROSIS RELAPSE [None]
  - THROMBOSIS [None]
